FAERS Safety Report 14667791 (Version 11)
Quarter: 2019Q2

REPORT INFORMATION
  Report Type: Spontaneous
  Country: US (occurrence: US)
  Receive Date: 20180322
  Receipt Date: 20190524
  Transmission Date: 20190711
  Serious: Yes (Hospitalization, Other)
  Sender: FDA-Public Use
  Company Number: US-PFIZER INC-2018118164

PATIENT
  Age: 65 Year
  Sex: Female
  Weight: 87 kg

DRUGS (8)
  1. BOSULIF [Suspect]
     Active Substance: BOSUTINIB MONOHYDRATE
     Indication: CHRONIC MYELOID LEUKAEMIA
     Dosage: 400 MG, 1X/DAY
     Route: 048
     Dates: start: 20180313
  2. METOPROLOL. [Concomitant]
     Active Substance: METOPROLOL
     Indication: CARDIAC DISORDER
     Dosage: 50 MG, DAILY
  3. BOSULIF [Suspect]
     Active Substance: BOSUTINIB MONOHYDRATE
     Dosage: 400 MG, 1X/DAY
     Route: 048
     Dates: start: 20190131, end: 2019
  4. BUMETANIDE. [Concomitant]
     Active Substance: BUMETANIDE
     Dosage: 4 MG, DAILY
  5. SPIRONOLACTONE. [Concomitant]
     Active Substance: SPIRONOLACTONE
     Indication: CARDIAC DISORDER
     Dosage: 0.5 DF, DAILY [1/2 TAB A DAY]
  6. POTASSIUM [Concomitant]
     Active Substance: POTASSIUM
     Dosage: 10 MG, 1X/DAY
  7. BUMETANIDE. [Concomitant]
     Active Substance: BUMETANIDE
     Indication: FLUID IMBALANCE
     Dosage: 1 MG, 2X/DAY
  8. LISINOPRIL. [Concomitant]
     Active Substance: LISINOPRIL
     Indication: HYPERTENSION
     Dosage: 10 MG, 1X/DAY

REACTIONS (10)
  - Insomnia [Not Recovered/Not Resolved]
  - Malaise [Unknown]
  - Pulmonary arterial hypertension [Not Recovered/Not Resolved]
  - Diarrhoea [Recovered/Resolved]
  - Pain in extremity [Not Recovered/Not Resolved]
  - Discomfort [Unknown]
  - Musculoskeletal pain [Not Recovered/Not Resolved]
  - Loss of personal independence in daily activities [Recovered/Resolved]
  - Arthralgia [Not Recovered/Not Resolved]
  - Cough [Recovered/Resolved]

NARRATIVE: CASE EVENT DATE: 2018
